FAERS Safety Report 5637492-6 (Version None)
Quarter: 2008Q1

REPORT INFORMATION
  Report Type: 
  Country: None (occurrence: None)
  Receive Date: 20080219
  Receipt Date: 20080204
  Transmission Date: 20080703
  Serious: Yes (Death)
  Sender: FDA-Public Use
  Company Number: 2008-01259

PATIENT
  Age: 52 Year
  Sex: Male

DRUGS (10)
  1. FIORICET [Suspect]
  2. TEMAZEPAM [Suspect]
  3. OXAZEPAM (WATSON LABORATORIES)(OXAZEPAM) CAPSULE [Suspect]
  4. IBUPROFEN [Suspect]
  5. PROPAFENONE HCL [Suspect]
  6. CARVEDILOL [Suspect]
  7. CARDIAC GLYCOSIDES [Suspect]
  8. POTASSIUM SPARING DIURETIC [Suspect]
  9. WARFARIN SODIUM [Suspect]
  10. OPIOIDS [Suspect]

REACTIONS (1)
  - CARDIO-RESPIRATORY ARREST [None]
